FAERS Safety Report 4517950-8 (Version None)
Quarter: 2004Q4

REPORT INFORMATION
  Report Type: 
  Country: None (occurrence: None)
  Receive Date: 20041130
  Receipt Date: 20041116
  Transmission Date: 20050328
  Serious: Yes (Other)
  Sender: FDA-Public Use
  Company Number: B0357088A

PATIENT
  Age: 65 Year
  Sex: Male

DRUGS (2)
  1. ZOVIRAX [Suspect]
     Indication: HERPES ZOSTER
     Dosage: ORAL
     Route: 048
  2. DIALYSIS [Concomitant]

REACTIONS (9)
  - ANXIETY [None]
  - CEREBRAL DISORDER [None]
  - DELIRIUM [None]
  - DELUSION [None]
  - DISTURBANCE IN ATTENTION [None]
  - DRUG TOXICITY [None]
  - NEUROTOXICITY [None]
  - PYREXIA [None]
  - VARICELLA ZOSTER VIRUS SEROLOGY POSITIVE [None]
